FAERS Safety Report 12222135 (Version 3)
Quarter: 2016Q3

REPORT INFORMATION
  Report Type: Spontaneous
  Country: US (occurrence: US)
  Receive Date: 20160330
  Receipt Date: 20160926
  Transmission Date: 20161109
  Serious: Yes (Hospitalization, Other)
  Sender: FDA-Public Use
  Company Number: US-JNJFOC-20160325174

PATIENT
  Age: 36 Year
  Sex: Female

DRUGS (1)
  1. INVOKANA [Suspect]
     Active Substance: CANAGLIFLOZIN
     Indication: TYPE 1 DIABETES MELLITUS
     Route: 048
     Dates: start: 201403, end: 201410

REACTIONS (6)
  - Renal injury [Unknown]
  - Gastroenteritis viral [Unknown]
  - Off label use [Unknown]
  - Diabetic ketoacidosis [Unknown]
  - Fungal infection [Unknown]
  - Product use issue [Unknown]

NARRATIVE: CASE EVENT DATE: 201405
